FAERS Safety Report 9859730 (Version 2)
Quarter: 2014Q1

REPORT INFORMATION
  Report Type: Spontaneous
  Country: US (occurrence: US)
  Receive Date: 20140131
  Receipt Date: 20140310
  Transmission Date: 20141002
  Serious: Yes (Other)
  Sender: FDA-Public Use
  Company Number: US-PFIZER INC-2014028718

PATIENT
  Age: 73 Year
  Sex: Male
  Weight: 109 kg

DRUGS (8)
  1. LYRICA [Suspect]
     Indication: NEURALGIA
     Dosage: 50 MG, DAILY
  2. LYRICA [Suspect]
     Dosage: 50 MG, 3X/DAY
     Dates: start: 2013
  3. LYRICA [Suspect]
     Dosage: 50 MG, 6X/DAY
     Dates: start: 2013
  4. SIMVASTATIN [Concomitant]
     Dosage: 40 MG, 1X/DAY
  5. GLIPIZIDE [Concomitant]
     Dosage: 5 MG, 1X/DAY
  6. CHLORTHALIDONE [Concomitant]
     Dosage: 25 MG, 1X/DAY
  7. METOPROLOL [Concomitant]
     Dosage: 25 MG, 2X/DAY
  8. OXYCODONE [Concomitant]
     Dosage: 5 MG, AS NEEDED

REACTIONS (3)
  - Cerebrovascular accident [Unknown]
  - Aphasia [Not Recovered/Not Resolved]
  - Drug ineffective [Unknown]
